FAERS Safety Report 9492944 (Version 1)
Quarter: 2013Q3

REPORT INFORMATION
  Report Type: Spontaneous
  Country: ES (occurrence: ES)
  Receive Date: 20130902
  Receipt Date: 20130902
  Transmission Date: 20140515
  Serious: Yes (Other)
  Sender: FDA-Public Use
  Company Number: ES-ROCHE-1266650

PATIENT
  Age: 76 Year
  Sex: Male

DRUGS (4)
  1. BEVACIZUMAB [Suspect]
     Indication: LUNG ADENOCARCINOMA
     Route: 065
     Dates: start: 201201, end: 201205
  2. BEVACIZUMAB [Suspect]
     Route: 065
     Dates: start: 201205, end: 201303
  3. TAXOL [Suspect]
     Indication: LUNG ADENOCARCINOMA
     Route: 065
     Dates: start: 201201, end: 201205
  4. CARBOPLATIN [Suspect]
     Indication: LUNG ADENOCARCINOMA
     Route: 065
     Dates: start: 201201, end: 201205

REACTIONS (1)
  - Renal failure [Unknown]
